FAERS Safety Report 20853016 (Version 1)
Quarter: 2022Q2

REPORT INFORMATION
  Report Type: Spontaneous
  Country: US (occurrence: None)
  Receive Date: 20220519
  Receipt Date: 20220519
  Transmission Date: 20220721
  Serious: No
  Sender: FDA-Public Use
  Company Number: None

PATIENT
  Sex: Male

DRUGS (1)
  1. IBRANCE [Suspect]
     Active Substance: PALBOCICLIB
     Indication: Retroperitoneal cancer
     Dosage: OTHER FREQUENCY : ONCE DAILY FOR 21D;?
     Route: 048
     Dates: start: 202103

REACTIONS (1)
  - Drug ineffective [None]
